FAERS Safety Report 12925592 (Version 2)
Quarter: 2016Q4

REPORT INFORMATION
  Report Type: Spontaneous
  Country: GB (occurrence: GB)
  Receive Date: 20161109
  Receipt Date: 20161214
  Transmission Date: 20170207
  Serious: Yes (Hospitalization)
  Sender: FDA-Public Use
  Company Number: GB-SA-2016SA202966

PATIENT
  Age: 72 Year
  Sex: Female

DRUGS (18)
  1. IRBESARTAN. [Suspect]
     Active Substance: IRBESARTAN
     Indication: HYPERTENSION
     Route: 048
     Dates: end: 20160904
  2. FOLIC ACID. [Concomitant]
     Active Substance: FOLIC ACID
  3. SIMVASTATIN. [Concomitant]
     Active Substance: SIMVASTATIN
  4. FUROSEMIDE. [Suspect]
     Active Substance: FUROSEMIDE
     Indication: HYPERTENSION
     Route: 048
     Dates: end: 20160904
  5. AMOXICILLIN. [Suspect]
     Active Substance: AMOXICILLIN
     Indication: LOWER RESPIRATORY TRACT INFECTION
     Dosage: STOPPED DUE TO DIARRHEA.
     Route: 048
     Dates: start: 20160902, end: 20160904
  6. COVONIA DRY COUGH SUGAR FREE FORMULA [Suspect]
     Active Substance: PHOLCODINE
     Indication: COUGH
     Route: 048
     Dates: start: 20160829, end: 20160830
  7. BISOPROLOL [Concomitant]
     Active Substance: BISOPROLOL
     Dosage: STOPPED
  8. ASPIRIN. [Concomitant]
     Active Substance: ASPIRIN
  9. COCODAMOL [Concomitant]
     Active Substance: ACETAMINOPHEN\CODEINE PHOSPHATE
  10. E45 [Concomitant]
     Active Substance: LANOLIN\LIGHT MINERAL OIL\PARAFFIN
  11. GLYCERYL TRINITRATE [Concomitant]
     Active Substance: NITROGLYCERIN
  12. SOLIFENACIN [Concomitant]
     Active Substance: SOLIFENACIN
  13. BETAHISTINE [Concomitant]
     Active Substance: BETAHISTINE
  14. LANSOPRAZOLE. [Concomitant]
     Active Substance: LANSOPRAZOLE
  15. METFORMIN [Concomitant]
     Active Substance: METFORMIN HYDROCHLORIDE
     Dosage: WITHHELD IN VIEW OF ACUTE KIDNEY INJURY AND DISCONTINUED.
  16. DOMPERIDONE [Concomitant]
     Active Substance: DOMPERIDONE
  17. LOPERAMIDE [Concomitant]
     Active Substance: LOPERAMIDE
  18. FERROUS SULFATE. [Suspect]
     Active Substance: FERROUS SULFATE
     Indication: IRON DEFICIENCY
     Dosage: STOPPED DUE TO DIARRHEA.
     Route: 048
     Dates: start: 2016, end: 20160904

REACTIONS (7)
  - Dizziness [Unknown]
  - Urine output decreased [Unknown]
  - Sinus bradycardia [Unknown]
  - Diarrhoea [Recovered/Resolved]
  - Sinus node dysfunction [Unknown]
  - Acute kidney injury [Recovering/Resolving]
  - Sinus arrest [Unknown]

NARRATIVE: CASE EVENT DATE: 20160830
